FAERS Safety Report 25690201 (Version 1)
Quarter: 2025Q3

REPORT INFORMATION
  Report Type: Spontaneous
  Country: US (occurrence: None)
  Receive Date: 20250815
  Receipt Date: 20250815
  Transmission Date: 20251021
  Serious: Yes (Other)
  Sender: FDA-CTU
  Company Number: None

PATIENT
  Age: 35 Year
  Sex: Male

DRUGS (1)
  1. HERBALS\MITRAGYNINE [Suspect]
     Active Substance: HERBALS\MITRAGYNINE

REACTIONS (10)
  - Drug dependence [None]
  - Anxiety [None]
  - Depression [None]
  - Withdrawal syndrome [None]
  - Pain [None]
  - Nausea [None]
  - Insomnia [None]
  - Restless legs syndrome [None]
  - Paranoia [None]
  - Hallucination, auditory [None]

NARRATIVE: CASE EVENT DATE: 20250621
